FAERS Safety Report 15377415 (Version 1)
Quarter: 2018Q3

REPORT INFORMATION
  Report Type: Spontaneous
  Country: US (occurrence: US)
  Receive Date: 20180913
  Receipt Date: 20180913
  Transmission Date: 20181010
  Serious: No
  Sender: FDA-Public Use
  Company Number: US-BAYER-2018-168280

PATIENT
  Age: 87 Year
  Sex: Female
  Weight: 57.37 kg

DRUGS (1)
  1. MIRALAX [Suspect]
     Active Substance: POLYETHYLENE GLYCOL 3350
     Indication: BOWEL MOVEMENT IRREGULARITY
     Dosage: ALMOST A FULL CAP, QD
     Route: 048
     Dates: start: 2017

REACTIONS (2)
  - Drug effective for unapproved indication [None]
  - Off label use [Unknown]
